FAERS Safety Report 9621047 (Version 2)
Quarter: 2013Q4

REPORT INFORMATION
  Report Type: Spontaneous
  Country: JP (occurrence: JP)
  Receive Date: 20131015
  Receipt Date: 20131023
  Transmission Date: 20140711
  Serious: Yes (Other)
  Sender: FDA-Public Use
  Company Number: PHHY2013JP114697

PATIENT
  Age: 36 Year
  Sex: Female

DRUGS (2)
  1. IMATINIB [Suspect]
     Indication: CHRONIC MYELOID LEUKAEMIA
     Dosage: 400 MG, ONCE DAILY
     Route: 048
     Dates: start: 201007
  2. ENTECAVIR [Interacting]
     Dosage: 0.5 MG, DAILY
     Route: 048
     Dates: start: 201105

REACTIONS (3)
  - Drug interaction [Recovered/Resolved]
  - Hepatitis B [Recovered/Resolved]
  - Liver disorder [Recovered/Resolved]
